FAERS Safety Report 9641974 (Version 2)
Quarter: 2013Q4

REPORT INFORMATION
  Report Type: Spontaneous
  Country: FR (occurrence: FR)
  Receive Date: 20131023
  Receipt Date: 20131115
  Transmission Date: 20140711
  Serious: Yes (Life-Threatening)
  Sender: FDA-Public Use
  Company Number: FR-GE HEALTHCARE MEDICAL DIAGNOSTICS-VISP-PR-1310S-0869

PATIENT
  Age: 57 Year
  Sex: Male

DRUGS (5)
  1. VISIPAQUE [Suspect]
     Indication: PRODUCT USED FOR UNKNOWN INDICATION
     Route: 042
     Dates: start: 20130805, end: 20130805
  2. VISIPAQUE [Suspect]
     Indication: DIAGNOSTIC PROCEDURE
  3. COZAAR [Suspect]
     Indication: HYPERTENSION
     Route: 048
     Dates: start: 20130724, end: 20130807
  4. HYZAAR [Suspect]
     Indication: HYPERTENSION
     Route: 048
     Dates: start: 20130724, end: 20130807
  5. TEMERIT [Concomitant]

REACTIONS (3)
  - Metabolic acidosis [Recovering/Resolving]
  - Renal failure acute [Recovering/Resolving]
  - Acute pulmonary oedema [Recovering/Resolving]
